FAERS Safety Report 5899455-5 (Version None)
Quarter: 2008Q3

REPORT INFORMATION
  Report Type: 
  Country: None (occurrence: None)
  Receive Date: 20080926
  Receipt Date: 20060628
  Transmission Date: 20090109
  Serious: Yes (Death, Other)
  Sender: FDA-Public Use
  Company Number: CA-NOVOPROD-254209

PATIENT
  Sex: Female

DRUGS (4)
  1. LEVEMIR [Suspect]
     Indication: DIABETES MELLITUS
     Dosage: 32 IU, QD
     Route: 058
     Dates: start: 20060109, end: 20060328
  2. SYNTHROID [Concomitant]
  3. HUMALOG [Concomitant]
  4. ASPIRIN [Concomitant]

REACTIONS (1)
  - NO ADVERSE EVENT [None]
